FAERS Safety Report 21325682 (Version 2)
Quarter: 2022Q3

REPORT INFORMATION
  Report Type: Spontaneous
  Country: US (occurrence: US)
  Receive Date: 20220912
  Receipt Date: 20220927
  Transmission Date: 20221027
  Serious: Yes (Other)
  Sender: FDA-Public Use
  Company Number: US-MALLINCKRODT-T202204356

PATIENT
  Age: 64 Year
  Sex: Female

DRUGS (3)
  1. H.P. ACTHAR [Suspect]
     Active Substance: CORTICOTROPIN
     Indication: Sarcoidosis
     Dosage: 80 UNITS, TWICE A WEEK
     Route: 058
     Dates: start: 201907
  2. H.P. ACTHAR [Suspect]
     Active Substance: CORTICOTROPIN
     Indication: Iridocyclitis
     Dosage: 0.5 MILLILITER, TWICE A WEEK
     Route: 058
     Dates: start: 202208
  3. H.P. ACTHAR [Suspect]
     Active Substance: CORTICOTROPIN
     Indication: Arthritis

REACTIONS (7)
  - Macular oedema [Not Recovered/Not Resolved]
  - Pharyngeal swelling [Unknown]
  - Arthralgia [Not Recovered/Not Resolved]
  - Condition aggravated [Not Recovered/Not Resolved]
  - Hypoaesthesia [Unknown]
  - Therapeutic product effect incomplete [Not Recovered/Not Resolved]
  - Underdose [Unknown]

NARRATIVE: CASE EVENT DATE: 20220801
